FAERS Safety Report 22806997 (Version 3)
Quarter: 2025Q3

REPORT INFORMATION
  Report Type: Spontaneous
  Country: US (occurrence: US)
  Receive Date: 20230810
  Receipt Date: 20250930
  Transmission Date: 20251021
  Serious: No
  Sender: AMGEN
  Company Number: US-AMGEN-USASP2023140253

PATIENT
  Age: 69 Year
  Sex: Male

DRUGS (1)
  1. REPATHA [Suspect]
     Active Substance: EVOLOCUMAB
     Indication: Blood cholesterol increased
     Dosage: 140 MILLIGRAM, Q2WK
     Route: 065

REACTIONS (3)
  - Drug dose omission by device [Unknown]
  - Wrong technique in product usage process [Unknown]
  - Viral infection [Unknown]

NARRATIVE: CASE EVENT DATE: 20230805
